FAERS Safety Report 21349473 (Version 1)
Quarter: 2022Q3

REPORT INFORMATION
  Report Type: Spontaneous
  Country: US (occurrence: None)
  Receive Date: 20220916
  Receipt Date: 20220916
  Transmission Date: 20221027
  Serious: No
  Sender: FDA-Public Use
  Company Number: None

PATIENT
  Age: 14 Year
  Sex: Female
  Weight: 87.8 kg

DRUGS (1)
  1. RITUXIMAB [Suspect]
     Active Substance: RITUXIMAB
     Dosage: OTHER FREQUENCY : ONCE;?
     Route: 041
     Dates: start: 20220627, end: 20220627

REACTIONS (2)
  - Serum sickness [None]
  - Infusion related reaction [None]

NARRATIVE: CASE EVENT DATE: 20220627
